FAERS Safety Report 4477275-6 (Version None)
Quarter: 2004Q4

REPORT INFORMATION
  Report Type: 
  Country: None (occurrence: None)
  Receive Date: 20041013
  Receipt Date: 20040930
  Transmission Date: 20050328
  Serious: Yes (Death, Hospitalization)
  Sender: FDA-Public Use
  Company Number: A01200404818

PATIENT
  Age: 80 Year
  Sex: Female

DRUGS (8)
  1. CLOPIDOGREL BISULFATE [Suspect]
     Dosage: 75 MG QD, ORAL
     Route: 048
     Dates: start: 20000303
  2. PRAVASTATIN SODIUM [Suspect]
     Dosage: 40 MG, QD
     Dates: start: 20000303, end: 20000331
  3. CELEBREX [Suspect]
     Dosage: 200 MG, QD
     Dates: start: 20000331
  4. PREDNISOLONE [Concomitant]
  5. FRUSEMIDE [Concomitant]
  6. ASPIRIN [Concomitant]
  7. VERAPAMIL [Concomitant]
  8. CAPTOPRIL [Concomitant]

REACTIONS (4)
  - AGRANULOCYTOSIS [None]
  - DEPRESSION [None]
  - PAIN IN EXTREMITY [None]
  - SEPSIS [None]
